APPROVED DRUG PRODUCT: IMIQUIMOD
Active Ingredient: IMIQUIMOD
Strength: 5%
Dosage Form/Route: CREAM;TOPICAL
Application: A091044 | Product #001
Applicant: ENCUBE ETHICALS PRIVATE LTD
Approved: Feb 28, 2011 | RLD: No | RS: No | Type: DISCN